FAERS Safety Report 5350849-6 (Version None)
Quarter: 2007Q2

REPORT INFORMATION
  Report Type: 
  Country: None (occurrence: None)
  Receive Date: 20070608
  Receipt Date: 20070606
  Transmission Date: 20071010
  Serious: Yes (Other)
  Sender: FDA-Public Use
  Company Number: A0654429A

PATIENT

DRUGS (2)
  1. VALTREX [Suspect]
     Indication: DRUG USE FOR UNKNOWN INDICATION
     Route: 048
  2. NO CONCURRENT MEDICATION [Concomitant]

REACTIONS (2)
  - HEPATIC ENZYME INCREASED [None]
  - LIVER DISORDER [None]
